FAERS Safety Report 6555748-X (Version None)
Quarter: 2010Q1

REPORT INFORMATION
  Report Type: 
  Country: None (occurrence: None)
  Receive Date: 20100128
  Receipt Date: 20100120
  Transmission Date: 20100710
  Serious: Yes (Disabling)
  Sender: FDA-Public Use
  Company Number: DE-ASTRAZENECA-2009SE28415

PATIENT
  Age: 36 Year
  Sex: Male
  Weight: 80 kg

DRUGS (4)
  1. CRESTOR [Suspect]
     Indication: HYPERCHOLESTEROLAEMIA
     Route: 048
     Dates: start: 20090101, end: 20090801
  2. EZETROL [Suspect]
     Indication: HYPERCHOLESTEROLAEMIA
     Dates: start: 20090801
  3. LOCOL [Concomitant]
     Indication: HYPERCHOLESTEROLAEMIA
     Dates: start: 20090101
  4. BETA-BLOCKER [Concomitant]

REACTIONS (7)
  - BLOOD CREATINE PHOSPHOKINASE INCREASED [None]
  - CIRCADIAN RHYTHM SLEEP DISORDER [None]
  - DIZZINESS [None]
  - GASTRITIS [None]
  - GASTROINTESTINAL PAIN [None]
  - INSOMNIA [None]
  - MYALGIA [None]
